FAERS Safety Report 6355508-9 (Version None)
Quarter: 2009Q3

REPORT INFORMATION
  Report Type: 
  Country: None (occurrence: None)
  Receive Date: 20090914
  Receipt Date: 20090902
  Transmission Date: 20100115
  Serious: Yes (Hospitalization, Other)
  Sender: FDA-Public Use
  Company Number: US-PFIZER INC-2009268255

PATIENT
  Sex: Female
  Weight: 61.224 kg

DRUGS (3)
  1. XANAX XR [Suspect]
     Indication: SLEEP DISORDER
  2. RESTORIL [Suspect]
     Dosage: UNK
  3. COUMADIN [Concomitant]
     Indication: CARDIAC FAILURE CONGESTIVE
     Dosage: UNK

REACTIONS (6)
  - ANXIETY [None]
  - DRUG INEFFECTIVE [None]
  - FEELING ABNORMAL [None]
  - GALLBLADDER OPERATION [None]
  - HALLUCINATION [None]
  - POLLAKIURIA [None]
